FAERS Safety Report 8156347-9 (Version None)
Quarter: 2012Q1

REPORT INFORMATION
  Report Type: 
  Country: None (occurrence: None)
  Receive Date: 20120222
  Receipt Date: 20120220
  Transmission Date: 20120608
  Serious: No
  Sender: FDA-Public Use
  Company Number: US-PFIZER INC-K201101058

PATIENT
  Sex: Female
  Weight: 61.678 kg

DRUGS (6)
  1. AVINZA [Suspect]
     Dosage: 120 MG, 1X/DAY
     Route: 048
     Dates: start: 20110818, end: 20110909
  2. DEXLANSOPRAZOLE [Concomitant]
     Indication: GASTRIC DISORDER
  3. KLONOPIN [Concomitant]
     Indication: SLEEP DISORDER
  4. KLONOPIN [Concomitant]
     Indication: PANIC ATTACK
     Dosage: 2 MG, UNK
  5. DEXLANSOPRAZOLE [Concomitant]
     Indication: CONSTIPATION
     Dosage: UNK
  6. KLONOPIN [Concomitant]
     Indication: ANXIETY

REACTIONS (11)
  - RESTLESSNESS [None]
  - MUSCLE SPASMS [None]
  - PYREXIA [None]
  - VOMITING [None]
  - DIARRHOEA [None]
  - DYSKINESIA [None]
  - INSOMNIA [None]
  - PAIN [None]
  - MUSCULOSKELETAL STIFFNESS [None]
  - SINUS DISORDER [None]
  - ANXIETY [None]
